FAERS Safety Report 6563816-1 (Version None)
Quarter: 2010Q1

REPORT INFORMATION
  Report Type: 
  Country: None (occurrence: None)
  Receive Date: 20100130
  Receipt Date: 20091230
  Transmission Date: 20100710
  Serious: Yes (Hospitalization)
  Sender: FDA-Public Use
  Company Number: US-ABBOTT-09P-163-0617135-00

PATIENT
  Sex: Female
  Weight: 90.8 kg

DRUGS (13)
  1. HUMIRA [Suspect]
     Indication: RHEUMATOID ARTHRITIS
     Dates: start: 20040101
  2. LEVOTHYROXINE SODIUM [Concomitant]
     Indication: HYPOTHYROIDISM
  3. FLUOXETINE [Concomitant]
     Indication: DEPRESSION
  4. REGLAN [Concomitant]
     Indication: CROHN'S DISEASE
  5. IMURAN [Concomitant]
     Indication: RHEUMATOID ARTHRITIS
  6. ASPIRIN [Concomitant]
     Indication: DRUG USE FOR UNKNOWN INDICATION
  7. COREG [Concomitant]
     Indication: HYPERTENSION
  8. NORVASC [Concomitant]
     Indication: HYPERTENSION
  9. ADVAIR DISKUS 100/50 [Concomitant]
     Indication: ASTHMA
  10. SINGULAIR [Concomitant]
     Indication: ASTHMA
  11. NORTRIPTYLINE HCL [Concomitant]
     Indication: DEPRESSION
  12. MULTIPLE VITAMINS [Concomitant]
     Indication: VITAMIN SUPPLEMENTATION
  13. URSODIL [Concomitant]
     Indication: BILIARY CIRRHOSIS PRIMARY

REACTIONS (4)
  - BRONCHITIS [None]
  - PAIN [None]
  - RHEUMATOID ARTHRITIS [None]
  - UPPER RESPIRATORY TRACT INFECTION [None]
